FAERS Safety Report 17986863 (Version 2)
Quarter: 2021Q2

REPORT INFORMATION
  Report Type: Spontaneous
  Country: US (occurrence: US)
  Receive Date: 20200707
  Receipt Date: 20210513
  Transmission Date: 20210717
  Serious: Yes (Other)
  Sender: FDA-Public Use
  Company Number: US-SA-2020SA172524

PATIENT
  Age: 56 Year
  Sex: Male

DRUGS (1)
  1. ZANTAC [Suspect]
     Active Substance: RANITIDINE HYDROCHLORIDE
     Indication: INTESTINAL ULCER
     Dosage: 150 MG, QD
     Dates: start: 199910, end: 202001

REACTIONS (2)
  - Lung carcinoma cell type unspecified stage III [Unknown]
  - Thyroid cancer stage II [Unknown]

NARRATIVE: CASE EVENT DATE: 20110901
